FAERS Safety Report 9830476 (Version 2)
Quarter: 2014Q1

REPORT INFORMATION
  Report Type: Spontaneous
  Country: US (occurrence: US)
  Receive Date: 20140120
  Receipt Date: 20140306
  Transmission Date: 20141002
  Serious: Yes (Hospitalization)
  Sender: FDA-Public Use
  Company Number: US-GLAXOSMITHKLINE-A1056573A

PATIENT
  Age: 85 Year
  Sex: Female

DRUGS (5)
  1. FLOVENT [Suspect]
     Indication: ASTHMA
     Dosage: 2PUFF TWICE PER DAY
     Route: 055
  2. VENTOLIN [Concomitant]
  3. NASONEX [Concomitant]
  4. THYROID MEDICATION [Concomitant]
  5. THEOPHYLLINE [Concomitant]

REACTIONS (2)
  - Hip fracture [Unknown]
  - Product quality issue [Unknown]
